FAERS Safety Report 14422847 (Version 3)
Quarter: 2018Q2

REPORT INFORMATION
  Report Type: Report from Study
  Country: US (occurrence: US)
  Receive Date: 20180123
  Receipt Date: 20180616
  Transmission Date: 20180711
  Serious: Yes (Life-Threatening, Hospitalization, Other)
  Sender: FDA-Public Use
  Company Number: US-AMGEN-USASL2017056171

PATIENT
  Age: 75 Year
  Sex: Female

DRUGS (4)
  1. REPATHA [Suspect]
     Active Substance: EVOLOCUMAB
     Indication: BLOOD CHOLESTEROL INCREASED
  2. REPATHA [Suspect]
     Active Substance: EVOLOCUMAB
     Indication: BLOOD CHOLESTEROL ABNORMAL
  3. REPATHA [Suspect]
     Active Substance: EVOLOCUMAB
     Indication: HYPERCHOLESTEROLAEMIA
     Dosage: 140 MG, Q2WK
     Route: 065
     Dates: start: 201609
  4. LASIX [Concomitant]
     Active Substance: FUROSEMIDE
     Dosage: UNK

REACTIONS (14)
  - Pleural effusion [Unknown]
  - Hypoacusis [Unknown]
  - Vertigo [Unknown]
  - Muscle spasms [Unknown]
  - Visual impairment [Not Recovered/Not Resolved]
  - Dry mouth [Unknown]
  - Carotid artery occlusion [Unknown]
  - Asthenia [Unknown]
  - Injection site pain [Recovered/Resolved]
  - Gait disturbance [Unknown]
  - Cardiac failure congestive [Unknown]
  - Cough [Unknown]
  - Cardiac arrest [Unknown]
  - Myocardial infarction [Unknown]

NARRATIVE: CASE EVENT DATE: 20170323
